FAERS Safety Report 4900132-5 (Version None)
Quarter: 2006Q1

REPORT INFORMATION
  Report Type: 
  Country: None (occurrence: None)
  Receive Date: 20060203
  Receipt Date: 20051213
  Transmission Date: 20060701
  Serious: Yes (Death, Hospitalization)
  Sender: FDA-Public Use
  Company Number: JP-BRISTOL-MYERS SQUIBB COMPANY-13214440

PATIENT
  Age: 68 Year
  Sex: Male

DRUGS (17)
  1. TAXOL [Suspect]
     Indication: GASTRIC CANCER
     Route: 033
     Dates: start: 20051207, end: 20051207
  2. SOLDEM 3A [Concomitant]
     Route: 041
     Dates: start: 20051207, end: 20051213
  3. NEO-MINOPHAGEN C [Concomitant]
     Route: 041
     Dates: start: 20051207, end: 20051213
  4. AMINOLEBAN [Concomitant]
     Route: 041
     Dates: start: 20051207, end: 20051212
  5. TAGAMET [Concomitant]
     Indication: PREMEDICATION
     Route: 041
     Dates: start: 20051207, end: 20051212
  6. LASIX [Concomitant]
     Route: 042
     Dates: start: 20051207, end: 20051212
  7. CHLOR-TRIMETON [Concomitant]
     Indication: PREMEDICATION
     Route: 042
     Dates: start: 20051207, end: 20051207
  8. ZANTAC [Concomitant]
     Indication: PREMEDICATION
     Route: 042
     Dates: start: 20051207, end: 20051207
  9. ZANTAC [Concomitant]
     Route: 042
     Dates: start: 20051207, end: 20051207
  10. DECADRON [Concomitant]
     Indication: PREMEDICATION
     Route: 041
     Dates: start: 20051207, end: 20051207
  11. HEPARIN [Concomitant]
     Route: 033
     Dates: start: 20051207, end: 20051207
  12. PURSENNID [Concomitant]
     Route: 048
     Dates: start: 20051210, end: 20051210
  13. OPSO [Concomitant]
     Route: 048
     Dates: start: 20051210, end: 20051212
  14. VOLTAREN [Concomitant]
     Route: 054
     Dates: start: 20051207, end: 20051209
  15. VOLTAREN [Concomitant]
     Route: 048
     Dates: start: 20051207, end: 20051209
  16. OXYCONTIN [Concomitant]
     Route: 048
     Dates: start: 20051209, end: 20051212
  17. MUCOSTA [Concomitant]
     Route: 048
     Dates: start: 20051207, end: 20051209

REACTIONS (3)
  - MALIGNANT NEOPLASM PROGRESSION [None]
  - PLATELET COUNT DECREASED [None]
  - WHITE BLOOD CELL COUNT DECREASED [None]
